FAERS Safety Report 19612634 (Version 1)
Quarter: 2021Q3

REPORT INFORMATION
  Report Type: Spontaneous
  Country: US (occurrence: US)
  Receive Date: 20210727
  Receipt Date: 20210727
  Transmission Date: 20211014
  Serious: Yes (Other)
  Sender: FDA-Public Use
  Company Number: US-CIPLA LTD.-2021US05153

PATIENT

DRUGS (4)
  1. ESCITALOPRAM [Suspect]
     Active Substance: ESCITALOPRAM OXALATE
     Indication: GENERALISED ANXIETY DISORDER
     Dosage: 5 MILLIGRAM
     Route: 065
  2. ESCITALOPRAM [Interacting]
     Active Substance: ESCITALOPRAM OXALATE
     Dosage: TITRATED TO 20 MG EACH MORNING AT 18.5 MONTHS
     Route: 065
  3. ESCITALOPRAM [Interacting]
     Active Substance: ESCITALOPRAM OXALATE
     Indication: PANIC ATTACK
     Dosage: 10 MILLIGRAM, QD (EACH MORNING)
     Route: 065
  4. ESCITALOPRAM [Interacting]
     Active Substance: ESCITALOPRAM OXALATE
     Indication: MAJOR DEPRESSION
     Dosage: TITRATED UP TO 15 MG/DAY AT 10 MONTH
     Route: 065

REACTIONS (7)
  - Nausea [Unknown]
  - Anxiety [Not Recovered/Not Resolved]
  - Depressive symptom [Recovering/Resolving]
  - Drug interaction [Unknown]
  - Panic attack [Recovering/Resolving]
  - Headache [Unknown]
  - Abdominal pain [Unknown]
